FAERS Safety Report 4830981-3 (Version None)
Quarter: 2005Q4

REPORT INFORMATION
  Report Type: 
  Country: None (occurrence: None)
  Receive Date: 20051114
  Receipt Date: 20051031
  Transmission Date: 20060501
  Serious: Yes (Hospitalization)
  Sender: FDA-Public Use
  Company Number: CIP05002522

PATIENT
  Age: 29 Year
  Sex: Female

DRUGS (10)
  1. DANTRIUM [Suspect]
     Indication: NEUROLEPTIC MALIGNANT SYNDROME
     Dosage: 80 MG TWICE DAILY, IV NOS
     Route: 042
     Dates: start: 20051016, end: 20051022
  2. DANTRIUM [Suspect]
     Indication: NEUROLEPTIC MALIGNANT SYNDROME
     Dosage: 25 MG TWICE DAILY, ORAL
     Route: 048
     Dates: start: 20051022, end: 20051023
  3. FAMOTIDINE [Concomitant]
  4. CEFOTIAM HYDROCHLORIDE [Concomitant]
  5. VITAMEDIN CAPSULE (BENFOTIAMINE, CYANOCOBALAMIN, PYRIDOXINE HYDROCHLOR [Concomitant]
  6. VISCORIN (ASCORBIC ACID) [Concomitant]
  7. FLAVITAN (FLAVINE ADENINE DINUCLEOTIDE) [Concomitant]
  8. PARLODEL  /00412202/ (BROMOCRIPTINE MESILATE) [Concomitant]
  9. DIAZEPAM [Concomitant]
  10. LEXOTAN (BROMAZEPAM) [Concomitant]

REACTIONS (2)
  - BLOOD CREATINE PHOSPHOKINASE INCREASED [None]
  - CONDITION AGGRAVATED [None]
